FAERS Safety Report 16283396 (Version 2)
Quarter: 2020Q4

REPORT INFORMATION
  Report Type: Spontaneous
  Country: US (occurrence: US)
  Receive Date: 20190507
  Receipt Date: 20201023
  Transmission Date: 20210113
  Serious: Yes (Death, Other)
  Sender: FDA-Public Use
  Company Number: US-ASTRAZENECA-2019SE61382

PATIENT
  Age: 21039 Day
  Sex: Female
  Weight: 54.4 kg

DRUGS (20)
  1. VITAMIN B12 [Concomitant]
     Active Substance: CYANOCOBALAMIN
  2. ALPRAZOLAM. [Concomitant]
     Active Substance: ALPRAZOLAM
  3. IBUPROFEN. [Concomitant]
     Active Substance: IBUPROFEN
  4. NEXIUM [Suspect]
     Active Substance: ESOMEPRAZOLE MAGNESIUM
     Indication: GASTROOESOPHAGEAL REFLUX DISEASE
     Route: 048
  5. MYLANTA [Concomitant]
     Active Substance: ALUMINUM HYDROXIDE\DIMETHICONE\MAGNESIUM HYDROXIDE
     Dosage: 800MG, SEVERAL TIME DAILY
     Route: 065
     Dates: start: 2000, end: 2015
  6. ATACAND [Concomitant]
     Active Substance: CANDESARTAN CILEXETIL
  7. TRAMADOL HCL [Concomitant]
     Active Substance: TRAMADOL HYDROCHLORIDE
  8. PROMETHAZINE [Concomitant]
     Active Substance: PROMETHAZINE HYDROCHLORIDE
  9. CLINDAMYCIN. [Concomitant]
     Active Substance: CLINDAMYCIN
  10. ROLAIDS [Concomitant]
     Active Substance: CALCIUM CARBONATE\MAGNESIUM HYDROXIDE
     Dosage: 200-550 MG, SEVERAL TIME DAILY
     Route: 065
     Dates: start: 2000, end: 2015
  11. VITAMIN D3 [Concomitant]
     Active Substance: CHOLECALCIFEROL
  12. ENOXAPARIN [Concomitant]
     Active Substance: ENOXAPARIN
  13. NEXIUM [Suspect]
     Active Substance: ESOMEPRAZOLE MAGNESIUM
     Indication: GASTROOESOPHAGEAL REFLUX DISEASE
     Dosage: 20-40 MG
     Route: 048
     Dates: start: 2010, end: 2011
  14. TUMS OTC [Concomitant]
     Dosage: SEVERAL TIME DAILY20.0MG UNKNOWN
     Route: 065
     Dates: start: 2000, end: 2015
  15. FLUVIRIN NOS [Concomitant]
     Active Substance: INFLUENZA VIRUS VACCINE
  16. TAMSULOSIN [Concomitant]
     Active Substance: TAMSULOSIN
  17. DIOVAN [Concomitant]
     Active Substance: VALSARTAN
  18. RILUZOLE. [Concomitant]
     Active Substance: RILUZOLE
  19. COREG [Concomitant]
     Active Substance: CARVEDILOL
  20. ZOLOFT [Concomitant]
     Active Substance: SERTRALINE HYDROCHLORIDE

REACTIONS (3)
  - Amyotrophic lateral sclerosis [Fatal]
  - Chronic kidney disease [Unknown]
  - Renal failure [Unknown]

NARRATIVE: CASE EVENT DATE: 20100521
